FAERS Safety Report 18190289 (Version 2)
Quarter: 2021Q3

REPORT INFORMATION
  Report Type: Spontaneous
  Country: US (occurrence: US)
  Receive Date: 20200825
  Receipt Date: 20210921
  Transmission Date: 20211014
  Serious: No
  Sender: FDA-Public Use
  Company Number: US-CELLTRION INC.-2020US025311

PATIENT

DRUGS (3)
  1. INFLECTRA [Suspect]
     Active Substance: INFLIXIMAB-DYYB
     Dosage: 100 MG, EVERY 4 WEEKS (FIRST AT EVERY 8 WEEKS, THEN EVERY 6 WEEKS, + THEN SWITCHED TO EVERY 4 WEEKS)
     Route: 065
  2. INFLECTRA [Suspect]
     Active Substance: INFLIXIMAB-DYYB
     Indication: COLITIS ULCERATIVE
     Dosage: 100 MG, EVERY 8 WEEKS (FIRST AT EVERY 8 WEEKS, THEN EVERY 6 WEEKS, + THEN SWITCHED TO EVERY 4 WEEKS)
     Route: 065
     Dates: start: 20200131
  3. INFLECTRA [Suspect]
     Active Substance: INFLIXIMAB-DYYB
     Dosage: 100 MG, EVERY 6 WEEKS (FIRST AT EVERY 8 WEEKS, THEN EVERY 6 WEEKS, + THEN SWITCHED TO EVERY 4 WEEKS)
     Route: 065

REACTIONS (1)
  - Off label use [Unknown]

NARRATIVE: CASE EVENT DATE: 2020
